FAERS Safety Report 20353677 (Version 1)
Quarter: 2022Q1

REPORT INFORMATION
  Report Type: Report from Study
  Country: JP (occurrence: JP)
  Receive Date: 20220120
  Receipt Date: 20220120
  Transmission Date: 20220423
  Serious: Yes (Other)
  Sender: FDA-Public Use
  Company Number: JP-JNJFOC-20220127445

PATIENT

DRUGS (1)
  1. ERLEADA [Suspect]
     Active Substance: APALUTAMIDE
     Indication: Hormone-refractory prostate cancer
     Dosage: DOSE UNKNOWN
     Route: 048

REACTIONS (7)
  - Neuropathy peripheral [Unknown]
  - Adverse event [Unknown]
  - Malaise [Unknown]
  - Hyperhidrosis [Unknown]
  - Rash [Unknown]
  - Prostatic specific antigen increased [Unknown]
  - Adverse event [Unknown]
